FAERS Safety Report 8103895-3 (Version None)
Quarter: 2012Q1

REPORT INFORMATION
  Report Type: 
  Country: None (occurrence: None)
  Receive Date: 20120201
  Receipt Date: 20120125
  Transmission Date: 20120608
  Serious: Yes (Hospitalization)
  Sender: FDA-Public Use
  Company Number: FR-PFIZER INC-K201101206

PATIENT
  Age: 84 Year
  Sex: Male

DRUGS (12)
  1. LASIX [Suspect]
     Dosage: 40 MG, 2X/DAY
     Route: 048
     Dates: end: 20110815
  2. PREVISCAN [Suspect]
     Dosage: UNK
     Route: 048
     Dates: start: 20080101, end: 20110815
  3. FORLAX [Concomitant]
     Dosage: UNK
  4. TRAMADOL HCL [Suspect]
     Dosage: 150 MG, 2X/DAY
     Route: 048
     Dates: end: 20110815
  5. ACETAMINOPHEN [Concomitant]
     Dosage: UNK
  6. DIGOXIN [Concomitant]
     Dosage: UNK
  7. POTASSIUM CHLORIDE [Concomitant]
     Dosage: UNK
  8. BISOPROLOL FUMARATE [Suspect]
     Dosage: 5 MG, 1X/DAY
     Route: 048
     Dates: end: 20110815
  9. ALLOPURINOL [Concomitant]
     Dosage: UNK
  10. ZOPICLONE [Suspect]
     Dosage: 7.5 MG, 1X/DAY
     Route: 048
     Dates: end: 20110815
  11. RABEPRAZOLE SODIUM [Concomitant]
     Dosage: 150 MG, 2X/DAY
     Route: 048
  12. RAMIPRIL [Suspect]
     Dosage: 5 MG, 1X/DAY
     Route: 048
     Dates: end: 20110815

REACTIONS (2)
  - FALL [None]
  - HAEMATOMA [None]
